FAERS Safety Report 11389755 (Version 1)
Quarter: 2015Q3

REPORT INFORMATION
  Report Type: Spontaneous
  Country: IT (occurrence: IT)
  Receive Date: 20150817
  Receipt Date: 20150817
  Transmission Date: 20151125
  Serious: Yes (Hospitalization)
  Sender: FDA-Public Use
  Company Number: PHHY2015IT095277

PATIENT
  Age: 79 Year
  Sex: Female

DRUGS (9)
  1. HALCION [Concomitant]
     Active Substance: TRIAZOLAM
     Indication: PRODUCT USED FOR UNKNOWN INDICATION
     Dosage: UNK
     Route: 048
  2. CARDIOASPIRIN [Concomitant]
     Active Substance: ASPIRIN
     Indication: PRODUCT USED FOR UNKNOWN INDICATION
     Dosage: UNK
     Route: 048
  3. MANTADAN [Suspect]
     Active Substance: AMANTADINE HYDROCHLORIDE
     Indication: PARKINSON^S DISEASE
     Dosage: 1 DF, QD
     Route: 048
     Dates: start: 20150701, end: 20150710
  4. SINEMET [Suspect]
     Active Substance: CARBIDOPA\LEVODOPA
     Indication: PARKINSON^S DISEASE
     Dosage: 1 DF, QD (100 MG + 25 MG)
     Route: 048
     Dates: start: 20150701, end: 20150710
  5. CIPROXIM [Concomitant]
     Active Substance: CIPROFLOXACIN HYDROCHLORIDE
     Indication: URINARY TRACT INFECTION BACTERIAL
     Dosage: UNK, 1 WEEK AGO
     Route: 065
  6. COMTAN [Suspect]
     Active Substance: ENTACAPONE
     Indication: PARKINSON^S DISEASE
     Dosage: 1 DF, QD
     Route: 048
     Dates: start: 20150701, end: 20150710
  7. AZILECT [Suspect]
     Active Substance: RASAGILINE MESYLATE
     Dosage: 1 DF, QD
     Route: 048
     Dates: start: 20150701, end: 20150710
  8. NORVASC [Concomitant]
     Active Substance: AMLODIPINE BESYLATE
     Indication: PRODUCT USED FOR UNKNOWN INDICATION
     Dosage: UNK
     Route: 048
  9. MIRAPEXIN [Suspect]
     Active Substance: PRAMIPEXOLE
     Indication: PARKINSON^S DISEASE
     Dosage: 1 DF, QD
     Route: 048
     Dates: start: 20150701, end: 20150710

REACTIONS (6)
  - Dizziness [Unknown]
  - Hyperpyrexia [Unknown]
  - Vertigo [Unknown]
  - Electrocardiogram abnormal [Unknown]
  - Hyperthermia malignant [Unknown]
  - Confusional state [Unknown]

NARRATIVE: CASE EVENT DATE: 20150710
